FAERS Safety Report 8187789-3 (Version None)
Quarter: 2012Q1

REPORT INFORMATION
  Report Type: 
  Country: None (occurrence: None)
  Receive Date: 20120302
  Receipt Date: 20111212
  Transmission Date: 20120608
  Serious: Yes (Hospitalization)
  Sender: FDA-Public Use
  Company Number: 001069926A

PATIENT
  Sex: Female

DRUGS (1)
  1. DAY CREAM SPF 20 UVA/UVB 30ML [Suspect]
     Indication: THERAPEUTIC SKIN CARE TOPICAL
     Dosage: DAILY

REACTIONS (2)
  - EYE SWELLING [None]
  - ERYTHEMA [None]
